FAERS Safety Report 14910180 (Version 2)
Quarter: 2018Q2

REPORT INFORMATION
  Report Type: Spontaneous
  Country: TW (occurrence: TW)
  Receive Date: 20180517
  Receipt Date: 20180522
  Transmission Date: 20180711
  Serious: Yes (Other)
  Sender: FDA-Public Use
  Company Number: TW-PFIZER INC-2018177450

PATIENT
  Age: 65 Year
  Sex: Male

DRUGS (11)
  1. XANAX [Suspect]
     Active Substance: ALPRAZOLAM
     Indication: PANIC DISORDER
     Dosage: 0.25 MG, BEFORE SLEEP
     Dates: start: 201804
  2. ATIVAN [Suspect]
     Active Substance: LORAZEPAM
     Indication: PANIC DISORDER
     Dosage: 2 DF, BEFORE SLEEP
     Dates: start: 201804
  3. ETUMINE [Suspect]
     Active Substance: CLOTHIAPINE
     Indication: PANIC DISORDER
     Dosage: BEFORE SLEEP
     Dates: start: 201804
  4. VALDOXAN [Suspect]
     Active Substance: AGOMELATINE
     Indication: PANIC DISORDER
     Dosage: BEFORE SLEEP
     Dates: start: 201804
  5. ZOLOFT [Suspect]
     Active Substance: SERTRALINE HYDROCHLORIDE
     Dosage: 1 DF, BID (1DF IN THE MORNING AND 1DF IN THE AFTERNOON)
     Dates: start: 2018
  6. XANAX [Suspect]
     Active Substance: ALPRAZOLAM
     Dosage: 1 DF, TID
     Dates: start: 201805
  7. XANAX [Suspect]
     Active Substance: ALPRAZOLAM
     Dosage: 1 DF, QD
     Dates: start: 2018
  8. ZOLOFT [Suspect]
     Active Substance: SERTRALINE HYDROCHLORIDE
     Dosage: 1 DF, TID
     Dates: start: 201805
  9. ZOLOFT [Suspect]
     Active Substance: SERTRALINE HYDROCHLORIDE
     Indication: PANIC DISORDER
     Dosage: UNK, 1X/DAY (BEFORE SLEEP)
     Dates: start: 201804
  10. STILNOX [Suspect]
     Active Substance: ZOLPIDEM TARTRATE
  11. ATIVAN [Suspect]
     Active Substance: LORAZEPAM
     Dosage: 1 DF, BID
     Dates: start: 2018

REACTIONS (5)
  - Suicidal ideation [Not Recovered/Not Resolved]
  - Drug effect incomplete [Not Recovered/Not Resolved]
  - Tachycardia [Unknown]
  - Fatigue [Not Recovered/Not Resolved]
  - Aspartate aminotransferase increased [Unknown]

NARRATIVE: CASE EVENT DATE: 2018
